FAERS Safety Report 4963883-2 (Version None)
Quarter: 2006Q2

REPORT INFORMATION
  Report Type: 
  Country: None (occurrence: None)
  Receive Date: 20060405
  Receipt Date: 20060220
  Transmission Date: 20061013
  Serious: Yes (Other)
  Sender: FDA-Public Use
  Company Number: US-MERCK-0602USA05139

PATIENT
  Age: 62 Year
  Sex: Female
  Weight: 111 kg

DRUGS (1)
  1. VIOXX [Suspect]
     Indication: OSTEOARTHRITIS
     Route: 048
     Dates: start: 20000127, end: 20010903

REACTIONS (1)
  - MYOCARDIAL INFARCTION [None]
